FAERS Safety Report 4339755-3 (Version None)
Quarter: 2004Q2

REPORT INFORMATION
  Report Type: 
  Country: None (occurrence: None)
  Receive Date: 20040415
  Receipt Date: 20040415
  Transmission Date: 20050107
  Serious: Yes (Hospitalization)
  Sender: FDA-Public Use
  Company Number: None

PATIENT
  Age: 38 Year
  Sex: Male
  Weight: 118 kg

DRUGS (13)
  1. DIHYDROERGOTAMINE [Suspect]
     Indication: MIGRAINE
     Dosage: 0.25 MG OTO IV
     Route: 042
     Dates: start: 20031206, end: 20031206
  2. LIPITOR [Concomitant]
  3. PERCOCET [Concomitant]
  4. DECADRON [Concomitant]
  5. BENADRYL [Concomitant]
  6. REGLAN [Concomitant]
  7. DEPACON [Concomitant]
  8. ZOFRAN [Concomitant]
  9. MORPHINE [Concomitant]
  10. MORPHINE [Concomitant]
  11. THORAZINE [Concomitant]
  12. IMODIUM [Concomitant]
  13. TORADOL [Concomitant]

REACTIONS (3)
  - CHEST PAIN [None]
  - DYSPNOEA [None]
  - NAUSEA [None]
